FAERS Safety Report 24268986 (Version 2)
Quarter: 2024Q3

REPORT INFORMATION
  Report Type: Spontaneous
  Country: US (occurrence: US)
  Receive Date: 20240830
  Receipt Date: 20240906
  Transmission Date: 20241017
  Serious: No
  Sender: BAUSCH AND LOMB
  Company Number: US-BAUSCH-BL-2024-013021

PATIENT
  Sex: Female

DRUGS (1)
  1. TRULANCE [Suspect]
     Active Substance: PLECANATIDE
     Indication: Product used for unknown indication
     Dosage: USED TRULANCE FEW YEARS AGO
     Route: 048

REACTIONS (3)
  - Limb discomfort [Unknown]
  - Drug ineffective [Unknown]
  - Insurance issue [Unknown]
